FAERS Safety Report 7935450-X (Version None)
Quarter: 2011Q4

REPORT INFORMATION
  Report Type: 
  Country: None (occurrence: None)
  Receive Date: 20111122
  Receipt Date: 20111025
  Transmission Date: 20120403
  Serious: Yes (Disabling, Other)
  Sender: FDA-Public Use
  Company Number: CA-ROCHE-GNE274769

PATIENT
  Sex: Male
  Weight: 91.118 kg

DRUGS (2)
  1. XOLAIR [Suspect]
     Indication: ASTHMA
     Route: 058
     Dates: start: 20070904, end: 20081223
  2. XOLAIR [Suspect]
     Dates: start: 20110322, end: 20110818

REACTIONS (2)
  - DRUG INEFFECTIVE [None]
  - ASTHMA [None]
